FAERS Safety Report 9241545 (Version 3)
Quarter: 2013Q2

REPORT INFORMATION
  Report Type: Report from Study
  Country: CA (occurrence: CA)
  Receive Date: 20130419
  Receipt Date: 20130617
  Transmission Date: 20140414
  Serious: Yes (Hospitalization)
  Sender: FDA-Public Use
  Company Number: CA-JNJFOC-20130406235

PATIENT
  Age: 27 Year
  Sex: Male
  Weight: 63 kg

DRUGS (3)
  1. REMICADE [Suspect]
     Indication: CROHN^S DISEASE
     Dosage: 2 INFUSIONS
     Route: 042
     Dates: start: 20130222
  2. PREDNISONE [Concomitant]
     Route: 065
     Dates: start: 201302
  3. IMURAN [Concomitant]
     Route: 065
     Dates: end: 201303

REACTIONS (1)
  - Intestinal perforation [Recovering/Resolving]
